FAERS Safety Report 6567551-5 (Version None)
Quarter: 2010Q1

REPORT INFORMATION
  Report Type: 
  Country: None (occurrence: None)
  Receive Date: 20100202
  Receipt Date: 20100125
  Transmission Date: 20100710
  Serious: Yes (Hospitalization, Other)
  Sender: FDA-Public Use
  Company Number: US-ELI_LILLY_AND_COMPANY-US201001005346

PATIENT
  Sex: Female

DRUGS (17)
  1. HUMALOG [Suspect]
     Indication: DIABETES MELLITUS
     Dosage: 20 U, UNK
  2. HUMALOG [Suspect]
     Dosage: UNK, AS NEEDED
  3. HUMALOG [Suspect]
     Dosage: 20 U, UNK
  4. HUMALOG [Suspect]
     Dosage: UNK, AS NEEDED
  5. HUMALOG [Suspect]
     Dosage: 20 U, UNK
  6. HUMALOG [Suspect]
     Dosage: UNK, AS NEEDED
  7. LANTUS [Concomitant]
  8. CYMBALTA [Concomitant]
  9. LYRICA [Concomitant]
  10. ZETIA [Concomitant]
  11. LIPITOR [Concomitant]
  12. AMITRIPTYLINE HCL [Concomitant]
  13. LEVOX [Concomitant]
  14. PREVACID [Concomitant]
  15. SINGULAIR [Concomitant]
  16. CAPADEX [Concomitant]
  17. MUCINEX [Concomitant]

REACTIONS (16)
  - BLOOD GLUCOSE INCREASED [None]
  - DEVICE FAILURE [None]
  - DRUG DISPENSING ERROR [None]
  - GAIT DISTURBANCE [None]
  - HEADACHE [None]
  - HIP SURGERY [None]
  - HOSPITALISATION [None]
  - HYSTERECTOMY [None]
  - INCORRECT DRUG DOSAGE FORM ADMINISTERED [None]
  - MEMORY IMPAIRMENT [None]
  - PRODUCT QUALITY ISSUE [None]
  - RADICAL HYSTERECTOMY [None]
  - SHOULDER OPERATION [None]
  - SINUSITIS [None]
  - STAPHYLOCOCCAL INFECTION [None]
  - VISUAL ACUITY REDUCED [None]
